FAERS Safety Report 7109747-X (Version None)
Quarter: 2010Q4

REPORT INFORMATION
  Report Type: 
  Country: None (occurrence: None)
  Receive Date: 20101118
  Receipt Date: 20101109
  Transmission Date: 20110411
  Serious: No
  Sender: FDA-Public Use
  Company Number: SE-DENTSPLY-2010-0099-EUR

PATIENT
  Sex: Female

DRUGS (2)
  1. ORAQIX [Suspect]
     Indication: ANAESTHESIA PROCEDURE
     Dates: start: 20100926, end: 20100926
  2. LEVOTHYROXINE SODIUM [Concomitant]

REACTIONS (1)
  - DYSPNOEA [None]
